FAERS Safety Report 8616864 (Version 18)
Quarter: 2014Q1

REPORT INFORMATION
  Report Type: Report from Study
  Country: CA (occurrence: CA)
  Receive Date: 20120615
  Receipt Date: 20140331
  Transmission Date: 20141002
  Serious: Yes (Hospitalization, Other)
  Sender: FDA-Public Use
  Company Number: PHHY2009CA39715

PATIENT
  Age: 74 Year
  Sex: Male

DRUGS (4)
  1. SANDOSTATIN LAR [Suspect]
     Indication: GASTRINOMA
     Dosage: 20 MG, QMO
     Route: 030
     Dates: start: 20060606
  2. SANDOSTATIN LAR [Suspect]
     Dosage: 20 MG, EVERY 4 WEEKS
     Route: 030
  3. SANDOSTATIN LAR [Suspect]
     Dosage: 20 MG, QMO
     Route: 030
  4. SANDOSTATIN LAR [Suspect]
     Dosage: 20 MG, EVERY 4 WEEKS
     Route: 030

REACTIONS (12)
  - Malaise [Unknown]
  - Blood pressure increased [Unknown]
  - General physical health deterioration [Unknown]
  - Contusion [Unknown]
  - Conjunctival discolouration [Unknown]
  - Pyrexia [Unknown]
  - Nasopharyngitis [Unknown]
  - Cataract [Unknown]
  - Body temperature decreased [Unknown]
  - Decreased appetite [Unknown]
  - Heart rate increased [Unknown]
  - Injection site pain [Unknown]
